FAERS Safety Report 10955041 (Version 1)
Quarter: 2015Q1

REPORT INFORMATION
  Report Type: Spontaneous
  Country: EG (occurrence: EG)
  Receive Date: 20150325
  Receipt Date: 20150325
  Transmission Date: 20150721
  Serious: Yes (Other)
  Sender: FDA-Public Use
  Company Number: EG-BRISTOL-MYERS SQUIBB COMPANY-BMS-2015-018117

PATIENT
  Age: 9 Year
  Sex: Female

DRUGS (2)
  1. LIDOCAINE. [Concomitant]
     Active Substance: LIDOCAINE
     Indication: PRODUCT USED FOR UNKNOWN INDICATION
     Dosage: UNK, Q2WK
     Route: 065
  2. KENACORT-A [Suspect]
     Active Substance: TRIAMCINOLONE
     Indication: GRANULOMA
     Route: 065

REACTIONS (2)
  - Pituitary-dependent Cushing^s syndrome [Recovering/Resolving]
  - Off label use [Unknown]
